FAERS Safety Report 5841145-9 (Version None)
Quarter: 2008Q3

REPORT INFORMATION
  Report Type: 
  Country: None (occurrence: None)
  Receive Date: 20080807
  Receipt Date: 20080807
  Transmission Date: 20090109
  Serious: Yes (Hospitalization)
  Sender: FDA-Public Use
  Company Number: None

PATIENT
  Age: 65 Year
  Sex: Female
  Weight: 63.1 kg

DRUGS (17)
  1. MELPHALAN  5MG/ML  CELGENE [Suspect]
     Indication: MULTIPLE MYELOMA
     Dosage: 50MG/M2 ONCE PO
     Route: 048
     Dates: start: 20080721, end: 20080721
  2. BORTEZOMIB  1MG/ML  MILLENIUM [Suspect]
     Dosage: 2.2MG ONCE IV BOLUS
     Route: 040
     Dates: start: 20080721, end: 20080721
  3. PALONESETRON [Concomitant]
  4. VORINOSTAT [Concomitant]
  5. DEXAMETHASONE [Concomitant]
  6. HEPARIN [Concomitant]
  7. ESOMEPRAZOLE [Concomitant]
  8. ACETAMINOPHEN [Concomitant]
  9. FOLIC ACID [Concomitant]
  10. ESCITALOPRAM [Concomitant]
  11. GABAPENTIN [Concomitant]
  12. ZOLPIDEM [Concomitant]
  13. ACTIVASE [Concomitant]
  14. ENOXAPARIN SODIUM [Concomitant]
  15. LASIX [Concomitant]
  16. LORAZEPAM [Concomitant]
  17. PROCHLORPERAZINE [Concomitant]

REACTIONS (4)
  - ERYTHEMA [None]
  - HYPOTENSION [None]
  - RASH GENERALISED [None]
  - SWOLLEN TONGUE [None]
